FAERS Safety Report 6092083-0 (Version None)
Quarter: 2009Q1

REPORT INFORMATION
  Report Type: 
  Country: None (occurrence: None)
  Receive Date: 20090225
  Receipt Date: 20090212
  Transmission Date: 20090719
  Serious: Yes (Life-Threatening, Hospitalization, Other)
  Sender: FDA-Public Use
  Company Number: JP-PFIZER INC-2008157929

PATIENT

DRUGS (3)
  1. SUNITINIB MALATE [Suspect]
     Dosage: UNK
     Route: 048
     Dates: start: 20080909, end: 20081217
  2. ALOSITOL [Concomitant]
     Dosage: UNK
     Route: 048
     Dates: end: 20081217
  3. THYRADIN S [Concomitant]
     Dosage: UNK
     Route: 048

REACTIONS (4)
  - DIVERTICULAR PERFORATION [None]
  - PERITONITIS [None]
  - PLATELET COUNT DECREASED [None]
  - SKIN EXFOLIATION [None]
